FAERS Safety Report 5233935-0 (Version None)
Quarter: 2007Q1

REPORT INFORMATION
  Report Type: 
  Country: None (occurrence: None)
  Receive Date: 20061204
  Receipt Date: 20060817
  Transmission Date: 20070707
  Serious: No
  Sender: FDA-Public Use
  Company Number: 2006-BP-07853BP

PATIENT
  Age: 87 Year
  Sex: Female
  Weight: 57.73 kg

DRUGS (4)
  1. SPIRIVA [Suspect]
     Indication: CHRONIC OBSTRUCTIVE PULMONARY DISEASE
     Dosage: 18 MCG (18 MCG,1 IN 1 D),IH
     Route: 055
     Dates: start: 20060601, end: 20060707
  2. AZMACORT [Concomitant]
  3. COMBIVENT (COMBIVENT /01261001/) [Concomitant]
  4. SYNTHROID [Concomitant]

REACTIONS (8)
  - BRONCHITIS CHRONIC [None]
  - CHAPPED LIPS [None]
  - DRY EYE [None]
  - DRY MOUTH [None]
  - DRY THROAT [None]
  - LIP DRY [None]
  - NEUROPATHY PERIPHERAL [None]
  - WEIGHT DECREASED [None]
